FAERS Safety Report 25225943 (Version 1)
Quarter: 2025Q2

REPORT INFORMATION
  Report Type: Spontaneous
  Country: US (occurrence: US)
  Receive Date: 20250422
  Receipt Date: 20250422
  Transmission Date: 20250717
  Serious: No
  Sender: SANOFI AVENTIS
  Company Number: US-SA-2025SA115256

PATIENT
  Sex: Female
  Weight: 67.59 kg

DRUGS (2)
  1. DUPIXENT [Suspect]
     Active Substance: DUPILUMAB
     Indication: Dermatitis atopic
     Dosage: 300 MG, QOW
     Route: 058
  2. DEXAMETHASONE INTENSOL [Concomitant]
     Active Substance: DEXAMETHASONE

REACTIONS (2)
  - Dry skin [Unknown]
  - Therapeutic response shortened [Unknown]
